FAERS Safety Report 5065213-7 (Version None)
Quarter: 2006Q3

REPORT INFORMATION
  Report Type: 
  Country: None (occurrence: None)
  Receive Date: 20060706
  Receipt Date: 20051011
  Transmission Date: 20061208
  Serious: Yes (Other)
  Sender: FDA-Public Use
  Company Number: 20456

PATIENT
  Sex: Female
  Weight: 78.4723 kg

DRUGS (2)
  1. MIDAZOLAM HCL [Suspect]
     Indication: GASTROOESOPHAGEAL REFLUX DISEASE
     Dosage: 1MG/Q 5 MIN/IV
     Route: 042
     Dates: start: 20050831
  2. DEMEROL [Concomitant]

REACTIONS (1)
  - DRUG INEFFECTIVE [None]
